FAERS Safety Report 7911711-5 (Version None)
Quarter: 2011Q4

REPORT INFORMATION
  Report Type: 
  Country: None (occurrence: None)
  Receive Date: 20111114
  Receipt Date: 20111020
  Transmission Date: 20120403
  Serious: Yes (Hospitalization)
  Sender: FDA-Public Use
  Company Number: ES-ROCHE-790763

PATIENT
  Sex: Female
  Weight: 77 kg

DRUGS (2)
  1. LETROZOLE [Suspect]
     Indication: BREAST CANCER METASTATIC
     Route: 048
  2. AVASTIN [Suspect]
     Indication: BREAST CANCER METASTATIC
     Dosage: DATE OF LAST DOSE PRIOR TO SAE: 19/JUL/2011
     Route: 042
     Dates: start: 20110622, end: 20110719

REACTIONS (1)
  - CEREBRAL ISCHAEMIA [None]
